FAERS Safety Report 15961874 (Version 1)
Quarter: 2019Q1

REPORT INFORMATION
  Report Type: Report from Study
  Country: DE (occurrence: DE)
  Receive Date: 20190214
  Receipt Date: 20190214
  Transmission Date: 20190417
  Serious: Yes (Hospitalization, Other)
  Sender: FDA-Public Use
  Company Number: PHHO2012DE021024

PATIENT
  Age: 45 Year
  Sex: Female
  Weight: 44.2 kg

DRUGS (4)
  1. TRASTUZUMAB. [Suspect]
     Active Substance: TRASTUZUMAB
     Indication: BREAST CANCER
     Dosage: 2 MG/KG, WE
     Route: 042
     Dates: start: 20091015, end: 20091230
  2. TYKERB [Suspect]
     Active Substance: LAPATINIB DITOSYLATE
     Indication: BREAST CANCER
     Dosage: 1500 MG, QD
     Route: 048
     Dates: start: 20100218, end: 20101014
  3. PACLITAXEL. [Suspect]
     Active Substance: PACLITAXEL
     Indication: BREAST CANCER
     Dosage: 80 MG/M2, QW
     Route: 042
     Dates: start: 20091015, end: 20091230
  4. IBUPROFEN. [Concomitant]
     Active Substance: IBUPROFEN
     Indication: BACK PAIN
     Dosage: 600 MG,
     Route: 048
     Dates: start: 2007, end: 20120118

REACTIONS (2)
  - Second primary malignancy [Recovered/Resolved]
  - Rectal cancer [Recovered/Resolved]

NARRATIVE: CASE EVENT DATE: 20111025
